FAERS Safety Report 8001750-0 (Version None)
Quarter: 2011Q4

REPORT INFORMATION
  Report Type: 
  Country: None (occurrence: None)
  Receive Date: 20111222
  Receipt Date: 20111216
  Transmission Date: 20120403
  Serious: Yes (Hospitalization)
  Sender: FDA-Public Use
  Company Number: DK-PFIZER INC-2011306071

PATIENT
  Age: 65 Year
  Sex: Male
  Weight: 75 kg

DRUGS (1)
  1. SUNITINIB MALATE [Suspect]
     Indication: METASTATIC RENAL CELL CARCINOMA
     Dosage: 50 MG, 1X/DAY, FOR 24 DAYS THEREAFTER PAUSE IN 30 DAYS
     Route: 048
     Dates: start: 20080716, end: 20081125

REACTIONS (6)
  - LEUKOPENIA [None]
  - FATIGUE [None]
  - STOMATITIS [None]
  - DEHYDRATION [None]
  - THROMBOCYTOPENIA [None]
  - ANAEMIA [None]
